FAERS Safety Report 8585356-0 (Version None)
Quarter: 2012Q3

REPORT INFORMATION
  Report Type: 
  Country: None (occurrence: None)
  Receive Date: 20120810
  Receipt Date: 20120808
  Transmission Date: 20120928
  Serious: Yes (Other)
  Sender: FDA-Public Use
  Company Number: US-PFIZER INC-2012193805

PATIENT
  Age: 94 Year
  Sex: Female
  Weight: 48 kg

DRUGS (11)
  1. COLESTIPOL HYDROCHLORIDE [Suspect]
     Indication: ABDOMINAL DISCOMFORT
     Dosage: 1 G, 2X/DAY
     Route: 048
     Dates: start: 19920125
  2. CALCIUM CITRATE [Concomitant]
     Dosage: 1000 MG, 1X/DAY
  3. FISH OIL [Concomitant]
     Dosage: 1000 MG, 1X/DAY
  4. IRON [Concomitant]
     Dosage: 60 MEQ, 1X/DAY
  5. TYLENOL [Concomitant]
     Dosage: 500 MG, 1X/DAY
  6. MAGNESIUM OXIDE [Concomitant]
     Dosage: 400 MG, 1X/DAY
  7. NASONEX [Concomitant]
     Indication: SEASONAL ALLERGY
     Dosage: TWO SPRAYS, 1X/DAY
  8. COLESTIPOL HYDROCHLORIDE [Suspect]
     Indication: DIARRHOEA
  9. ASPIRIN [Concomitant]
     Dosage: 81 MG, 1X/DAY
  10. MULTI-VITAMINS [Concomitant]
     Dosage: UNK, 1X/DAY
  11. LUTEIN [Concomitant]
     Dosage: 20 MG, 1X/DAY

REACTIONS (2)
  - FALL [None]
  - PERICARDIAL EFFUSION [None]
